FAERS Safety Report 19614825 (Version 1)
Quarter: 2021Q3

REPORT INFORMATION
  Report Type: Spontaneous
  Country: US (occurrence: US)
  Receive Date: 20210727
  Receipt Date: 20210727
  Transmission Date: 20211014
  Serious: No
  Sender: FDA-Public Use
  Company Number: US-ENDO PHARMACEUTICALS INC-2020-006249

PATIENT
  Sex: Male
  Weight: 129.71 kg

DRUGS (6)
  1. EDEX [Suspect]
     Active Substance: ALPROSTADIL
     Indication: PRODUCT USED FOR UNKNOWN INDICATION
     Dosage: 40 MCG, UNKNOWN
     Route: 065
  2. EDEX [Suspect]
     Active Substance: ALPROSTADIL
     Indication: PRODUCT USED FOR UNKNOWN INDICATION
     Dosage: 40 MCG, UNKNOWN
     Route: 065
  3. EDEX [Suspect]
     Active Substance: ALPROSTADIL
     Indication: PRODUCT USED FOR UNKNOWN INDICATION
     Dosage: 40 MCG, UNKNOWN
     Route: 065
  4. EDEX [Suspect]
     Active Substance: ALPROSTADIL
     Dosage: 20 MCG, UNKNOWN
     Route: 065
  5. EDEX [Suspect]
     Active Substance: ALPROSTADIL
     Dosage: 20 MCG, UNKNOWN
     Route: 065
  6. EDEX [Suspect]
     Active Substance: ALPROSTADIL
     Dosage: 20 MCG, UNKNOWN
     Route: 065

REACTIONS (1)
  - Drug ineffective [Unknown]
